FAERS Safety Report 6796288-2 (Version None)
Quarter: 2010Q2

REPORT INFORMATION
  Report Type: 
  Country: None (occurrence: None)
  Receive Date: 20100624
  Receipt Date: 20100624
  Transmission Date: 20101027
  Serious: No
  Sender: FDA-Public Use
  Company Number: None

PATIENT
  Age: 80 Year
  Sex: Female

DRUGS (1)
  1. GABAPENTIN [Suspect]
     Indication: NEUROPATHY PERIPHERAL
     Dosage: 800MG BY MOUTH DAILY
     Route: 048
     Dates: start: 20100610, end: 20100617

REACTIONS (2)
  - CHOKING [None]
  - TABLET ISSUE [None]
